FAERS Safety Report 8271775-9 (Version None)
Quarter: 2012Q2

REPORT INFORMATION
  Report Type: 
  Country: None (occurrence: None)
  Receive Date: 20120410
  Receipt Date: 20120404
  Transmission Date: 20120825
  Serious: Yes (Other)
  Sender: FDA-Public Use
  Company Number: US-BAYER-2012-033532

PATIENT
  Sex: Female

DRUGS (3)
  1. NAPROXEN (ALEVE) [Suspect]
     Indication: ARTHRITIS
     Route: 048
  2. ALEVE (CAPLET) [Suspect]
     Indication: ARTHRITIS
     Dosage: UNK
     Route: 048
  3. ALEVE (CAPLET) [Suspect]
     Indication: ARTHRITIS
     Dosage: UNK UNK, PRN
     Route: 048

REACTIONS (3)
  - NO ADVERSE EVENT [None]
  - CHOKING [None]
  - FOREIGN BODY [None]
